FAERS Safety Report 4894807-4 (Version None)
Quarter: 2006Q1

REPORT INFORMATION
  Report Type: 
  Country: None (occurrence: None)
  Receive Date: 20060130
  Receipt Date: 20060124
  Transmission Date: 20060701
  Serious: Yes (Other)
  Sender: FDA-Public Use
  Company Number: PHEH2006US01269

PATIENT
  Sex: Female

DRUGS (3)
  1. ZELNORM [Suspect]
     Indication: CONSTIPATION
     Dosage: 6 MG, BID
     Route: 048
     Dates: start: 20051001
  2. DURAGESIC-100 [Concomitant]
     Indication: BACK PAIN
     Dates: start: 20030101
  3. TRAZODONE [Concomitant]
     Indication: SLEEP DISORDER

REACTIONS (6)
  - ABDOMINAL PAIN [None]
  - CONSTIPATION [None]
  - DIARRHOEA [None]
  - DRUG INEFFECTIVE [None]
  - FAECES DISCOLOURED [None]
  - HAEMATOCHEZIA [None]
